FAERS Safety Report 11462893 (Version 1)
Quarter: 2015Q3

REPORT INFORMATION
  Report Type: Spontaneous
  Country: US (occurrence: US)
  Receive Date: 20150831
  Receipt Date: 20150831
  Transmission Date: 20151125
  Serious: No
  Sender: FDA-Public Use
  Company Number: US-ELI_LILLY_AND_COMPANY-US201102002556

PATIENT
  Age: 84 Year
  Sex: Female

DRUGS (4)
  1. BONIVA [Concomitant]
     Active Substance: IBANDRONATE SODIUM
  2. CYMBALTA [Suspect]
     Active Substance: DULOXETINE HYDROCHLORIDE
     Indication: ANXIETY
     Dosage: 20 MG, DAILY (1/D)
  3. PAMELOR [Interacting]
     Active Substance: NORTRIPTYLINE HYDROCHLORIDE
  4. ANTIHYPERTENSIVES [Concomitant]
     Active Substance: UNSPECIFIED INGREDIENT

REACTIONS (6)
  - Nausea [Unknown]
  - Diarrhoea [Unknown]
  - Drug interaction [Unknown]
  - Feeling abnormal [Recovered/Resolved]
  - Parkinsonism [Not Recovered/Not Resolved]
  - Muscle rigidity [Recovered/Resolved]
